FAERS Safety Report 10035656 (Version 1)
Quarter: 2014Q1

REPORT INFORMATION
  Report Type: Spontaneous
  Country: US (occurrence: None)
  Receive Date: 20140306
  Receipt Date: 20140306
  Transmission Date: 20141002
  Serious: Yes (Other)
  Sender: FDA-Public Use
  Company Number: 163-21880-12123057

PATIENT
  Age: 65 Year
  Sex: Male

DRUGS (3)
  1. REVLIMID (LENALIDOMIDE) (5 MILLIGRAM, CAPSULES) [Suspect]
     Indication: MYELOFIBROSIS
     Dosage: 5 MG, 21 IN 21 D, PO
     Route: 048
     Dates: start: 201211
  2. RUXOLITINIB (RUXOLITINIB) [Concomitant]
  3. IRON  SULFATE (FERROUS SULFATE) [Concomitant]

REACTIONS (1)
  - Haemoglobin decreased [None]
